FAERS Safety Report 21386386 (Version 1)
Quarter: 2022Q3

REPORT INFORMATION
  Report Type: Spontaneous
  Country: IT (occurrence: IT)
  Receive Date: 20220928
  Receipt Date: 20220928
  Transmission Date: 20221026
  Serious: Yes (Other)
  Sender: FDA-Public Use
  Company Number: IT-MYLANLABS-2022M1097110

PATIENT
  Age: 58 Year
  Sex: Male

DRUGS (12)
  1. TRASTUZUMAB [Suspect]
     Active Substance: TRASTUZUMAB
     Indication: HER2 positive breast cancer
     Dosage: 8 MILLIGRAM/KILOGRAM (IV TRASTUZUMAB AT LOADING DOSE OF 8MG/KG, FOLLOWED BY 6MG/KG MAINTENANCE DOSE
     Route: 042
     Dates: start: 201601
  2. TRASTUZUMAB [Suspect]
     Active Substance: TRASTUZUMAB
     Dosage: 6 MILLIGRAM/KILOGRAM, Q3W (IV TRASTUZUMAB AT LOADING DOSE OF 8 MG/KG, FOLLOWED BY 6 MG/KG MAINTENANC
     Route: 042
  3. TRASTUZUMAB [Suspect]
     Active Substance: TRASTUZUMAB
     Dosage: 6 MILLIGRAM/KILOGRAM, Q3W, (AS A PART OF VINORELBINE AND TRASTUZUMAB;)
     Route: 042
     Dates: start: 201808
  4. TRASTUZUMAB [Suspect]
     Active Substance: TRASTUZUMAB
     Dosage: UNK (AS A PART OF BICALUTAMIDE, LEUPRORELIN AND TRASTUZUMAB THERAPY;)
     Route: 042
     Dates: start: 201906
  5. TRASTUZUMAB [Suspect]
     Active Substance: TRASTUZUMAB
     Dosage: UNK (AS A PART OF GEMCITABINE AND TRASTUZUMAB;)
     Route: 042
     Dates: start: 201908
  6. CAPECITABINE [Suspect]
     Active Substance: CAPECITABINE
     Indication: Extramammary Paget^s disease
     Dosage: 1500 MILLIGRAM, QD
     Route: 065
     Dates: start: 201508
  7. VINORELBINE [Suspect]
     Active Substance: VINORELBINE TARTRATE
     Indication: Extramammary Paget^s disease
     Dosage: 50 MILLIGRAM (THE PATIENT RECEIVED METRONOMIC ORAL VINORELBINE 50MG ON MONDAY, WEDNESDAY AND FRIDAY
     Route: 048
     Dates: start: 201808
  8. BICALUTAMIDE [Suspect]
     Active Substance: BICALUTAMIDE
     Indication: Extramammary Paget^s disease
     Dosage: 50 MILLIGRAM, QD
     Route: 048
     Dates: start: 201906
  9. LEUPROLIDE ACETATE [Suspect]
     Active Substance: LEUPROLIDE ACETATE
     Indication: Extramammary Paget^s disease
     Dosage: 11.25 MILLIGRAM, Q3MONTHS
     Route: 030
     Dates: start: 201906
  10. GEMCITABINE [Suspect]
     Active Substance: GEMCITABINE
     Indication: Extramammary Paget^s disease
     Dosage: 800 MILLIGRAM (THE PATIENT RECEIVED GEMCITABINE (800MG DAY 1, DAY 8 EVERY THREE WEEKS))
     Route: 065
     Dates: start: 201908
  11. CARBOPLATIN [Concomitant]
     Active Substance: CARBOPLATIN
     Indication: Extramammary Paget^s disease
     Dosage: UNK (THE PATIENT RECEIVED CARBOPLATIN AREA UNDER THE CURVE (AUC) OF 5 EVERY 3 WEEKS)
     Route: 065
     Dates: start: 201601, end: 201605
  12. PACLITAXEL [Concomitant]
     Active Substance: PACLITAXEL
     Indication: Extramammary Paget^s disease
     Dosage: UNK (THE PATIENT RECEIVED PACLITAXEL (150 MG/MQ EVERY 3 WEEKS))
     Route: 065
     Dates: start: 201601, end: 201605

REACTIONS (3)
  - Drug ineffective [Unknown]
  - Disease progression [Unknown]
  - Off label use [Unknown]
